FAERS Safety Report 21478844 (Version 2)
Quarter: 2022Q4

REPORT INFORMATION
  Report Type: Spontaneous
  Country: DE (occurrence: DE)
  Receive Date: 20221019
  Receipt Date: 20221021
  Transmission Date: 20230113
  Serious: No
  Sender: FDA-Public Use
  Company Number: DE-SANOFI-01320424

PATIENT
  Age: 45 Year
  Sex: Female

DRUGS (5)
  1. DUPIXENT [Suspect]
     Active Substance: DUPILUMAB
     Indication: Diabetes mellitus
     Dosage: UNK
  2. RIFAMPIN [Concomitant]
     Active Substance: RIFAMPIN
  3. AZITHROMYCIN [Concomitant]
     Active Substance: AZITHROMYCIN
     Dosage: 500 MG, QW
     Route: 042
  4. DOXYCYCLINE [Concomitant]
     Active Substance: DOXYCYCLINE
  5. COVID-19 VACCINE [Concomitant]
     Indication: Immunisation

REACTIONS (1)
  - No adverse event [Unknown]
